FAERS Safety Report 25664723 (Version 1)
Quarter: 2025Q3

REPORT INFORMATION
  Report Type: Spontaneous
  Country: US (occurrence: None)
  Receive Date: 20250808
  Receipt Date: 20250808
  Transmission Date: 20251020
  Serious: Yes (Hospitalization)
  Sender: FDA-CTU
  Company Number: None

PATIENT
  Age: 57 Year
  Sex: Male
  Weight: 57.4 kg

DRUGS (16)
  1. OXALIPLATIN [Suspect]
     Active Substance: OXALIPLATIN
     Indication: Gastric cancer
     Route: 042
     Dates: start: 20250303
  2. aprepitant (CINVANTI) injection 130 mg IV once [Concomitant]
     Dates: start: 20250707, end: 20250707
  3. dexamethasone in 0.9 % NaCl (DECADRON) 12 mg/25 mL IVPB 12 mg IV Once [Concomitant]
     Dates: start: 20250707, end: 20250707
  4. dextrose 5 % infusion 500 mL IV continuous, @ 20 mL/hr [Concomitant]
     Dates: start: 20250707, end: 20250707
  5. diphenhydrAMINE (BENADRYL) injection 25 mg IV q30 min PRN [Concomitant]
     Dates: start: 20250707, end: 20250707
  6. diphenhydrAMINE (BENADRYL) injection 50 mg IV Once [Concomitant]
     Dates: start: 20250707, end: 20250707
  7. DOCEtaxeL (TAXOTERE) 67 mg in sodium chloride 0.9 % 110 mL IV Once [Concomitant]
     Dates: start: 20250707, end: 20250707
  8. EPINEPHrine (EPIPEN) injection 0.3 mg IM Once PRN [Concomitant]
     Dates: start: 20250707, end: 20250707
  9. famotidine (PEPCID) PF injection 40 mg IV Once [Concomitant]
     Dates: start: 20250707, end: 20250707
  10. hydrocortisone sodium succinate (Solu-CORTEF) 100 mg IV q15 min PRN [Concomitant]
     Dates: start: 20250707, end: 20250707
  11. leucovorin calcium (WELLCOVORIN) 334 mg in dextrose 5 % 275 mL, IV Onc [Concomitant]
     Dates: start: 20250707, end: 20250707
  12. palonosetron (ALOXI) injection 0.25 mg IV Once [Concomitant]
     Dates: start: 20250707, end: 20250707
  13. sodium chloride 0.9 % infusion 500 mL IV continuous, 20 mL/hr [Concomitant]
     Dates: start: 20250707, end: 20250707
  14. LEUCOVORIN [Suspect]
     Active Substance: LEUCOVORIN\LEUCOVORIN CALCIUM
  15. FLUOROURACIL [Suspect]
     Active Substance: FLUOROURACIL
  16. DOCETAXEL [Suspect]
     Active Substance: DOCETAXEL

REACTIONS (5)
  - Chest discomfort [None]
  - Dyspnoea [None]
  - Flushing [None]
  - Infusion related reaction [None]
  - Rash [None]

NARRATIVE: CASE EVENT DATE: 20250707
